FAERS Safety Report 20696654 (Version 1)
Quarter: 2022Q2

REPORT INFORMATION
  Report Type: Spontaneous
  Country: PT (occurrence: PT)
  Receive Date: 20220411
  Receipt Date: 20220411
  Transmission Date: 20220721
  Serious: Yes (Death, Hospitalization, Other)
  Sender: FDA-Public Use
  Company Number: PT-ViiV Healthcare Limited-PT2022EME047272

PATIENT
  Age: 85 Year
  Sex: Female
  Weight: 73 kg

DRUGS (7)
  1. ATORVASTATIN CALCIUM [Suspect]
     Active Substance: ATORVASTATIN CALCIUM
  2. CANDESARTAN CILEXETIL [Suspect]
     Active Substance: CANDESARTAN CILEXETIL
  3. FUROSEMIDE [Suspect]
     Active Substance: FUROSEMIDE
  4. PANTOPRAZOLE [Suspect]
     Active Substance: PANTOPRAZOLE
  5. FLUOXETINE HYDROCHLORIDE [Suspect]
     Active Substance: FLUOXETINE HYDROCHLORIDE
  6. LINAGLIPTIN [Suspect]
     Active Substance: LINAGLIPTIN
  7. DOVATO [Suspect]
     Active Substance: DOLUTEGRAVIR SODIUM\LAMIVUDINE
     Indication: HIV infection
     Dosage: UNK, 50 +100 MG
     Dates: start: 20210623

REACTIONS (4)
  - Staphylococcal sepsis [Fatal]
  - Urinary tract infection [Unknown]
  - Cystostomy [Unknown]
  - Post procedural infection [Unknown]
